FAERS Safety Report 8592329-0 (Version None)
Quarter: 2012Q3

REPORT INFORMATION
  Report Type: 
  Country: None (occurrence: None)
  Receive Date: 20120814
  Receipt Date: 20120806
  Transmission Date: 20120928
  Serious: Yes (Other)
  Sender: FDA-Public Use
  Company Number: US-JNJFOC-20120804199

PATIENT
  Sex: Female
  Weight: 58.97 kg

DRUGS (6)
  1. REMICADE [Suspect]
     Indication: COLITIS ULCERATIVE
     Route: 042
     Dates: start: 20120101
  2. REMICADE [Suspect]
     Route: 042
     Dates: start: 20091101, end: 20120101
  3. CLARITIN [Concomitant]
     Indication: SEASONAL ALLERGY
     Route: 048
     Dates: start: 20080101
  4. ALL OTHER THERAPEUTICS [Concomitant]
     Indication: COLITIS ULCERATIVE
     Route: 048
     Dates: start: 20080101
  5. WELLBUTRIN [Concomitant]
     Indication: ANXIETY
     Route: 048
  6. ATENOLOL [Concomitant]
     Indication: ROSACEA
     Route: 048
     Dates: start: 20070101

REACTIONS (4)
  - ENDOMETRIOSIS [None]
  - CLOSTRIDIAL INFECTION [None]
  - COLITIS ULCERATIVE [None]
  - ALOPECIA [None]
